FAERS Safety Report 8281629-X (Version None)
Quarter: 2012Q2

REPORT INFORMATION
  Report Type: 
  Country: None (occurrence: None)
  Receive Date: 20120413
  Receipt Date: 20120403
  Transmission Date: 20120825
  Serious: Yes (Other)
  Sender: FDA-Public Use
  Company Number: US-JNJFOC-20120401665

PATIENT
  Sex: Female
  Weight: 54.43 kg

DRUGS (1)
  1. REMICADE [Suspect]
     Indication: CROHN'S DISEASE
     Route: 042
     Dates: start: 20060101, end: 20070101

REACTIONS (7)
  - EATING DISORDER [None]
  - SWELLING [None]
  - ADVERSE DRUG REACTION [None]
  - ERYTHEMA NODOSUM [None]
  - ERYTHEMA [None]
  - DRUG INEFFECTIVE [None]
  - INFECTION [None]
